FAERS Safety Report 5141421-1 (Version None)
Quarter: 2006Q4

REPORT INFORMATION
  Report Type: 
  Country: None (occurrence: None)
  Receive Date: 20061101
  Receipt Date: 20061027
  Transmission Date: 20070319
  Serious: Yes (Other)
  Sender: FDA-Public Use
  Company Number: ES-GLAXOSMITHKLINE-B0444796A

PATIENT
  Age: 26 Year
  Sex: Male

DRUGS (3)
  1. AUGMENTIN '125' [Suspect]
     Indication: TOOTH DISORDER
     Route: 048
     Dates: start: 20060221, end: 20060221
  2. ENANTYUM [Suspect]
     Indication: TOOTH DISORDER
     Route: 048
     Dates: start: 20060201, end: 20060201
  3. NOLOTIL [Suspect]
     Indication: TOOTH DISORDER
     Route: 048
     Dates: start: 20060201, end: 20060201

REACTIONS (3)
  - ANGIONEUROTIC OEDEMA [None]
  - FACE OEDEMA [None]
  - URTICARIA [None]
